FAERS Safety Report 10095290 (Version 1)
Quarter: 2014Q2

REPORT INFORMATION
  Report Type: Spontaneous
  Country: US (occurrence: None)
  Receive Date: 20140418
  Receipt Date: 20140418
  Transmission Date: 20141212
  Serious: Yes (Hospitalization)
  Sender: FDA-Public Use
  Company Number: 2013-US-005232

PATIENT
  Age: 34 Year
  Sex: Female
  Weight: 61.2 kg

DRUGS (6)
  1. XYREM [Suspect]
     Indication: NARCOLEPSY
     Route: 048
     Dates: start: 201301
  2. LAMICTAL (LAMOTRIGINE) [Concomitant]
  3. TOPAMAX (TOPIRAMATE) [Concomitant]
  4. WELLBUTRIN (BUPROPION HYDROCHLORIDE) [Concomitant]
  5. ZOLOFT (SERTRALINE HYDROCHLORIDE) [Concomitant]
  6. ABILIFY (ARIPIPRAZOLE) [Concomitant]

REACTIONS (2)
  - Endometriosis [None]
  - Laser therapy [None]
